FAERS Safety Report 13627550 (Version 1)
Quarter: 2017Q2

REPORT INFORMATION
  Report Type: Spontaneous
  Country: BR (occurrence: BR)
  Receive Date: 20170608
  Receipt Date: 20170608
  Transmission Date: 20170830
  Serious: Yes (Other)
  Sender: FDA-Public Use
  Company Number: BR-BIOMARINAP-BR-2016-114255

PATIENT
  Age: 7 Year
  Sex: Female
  Weight: 22.5 kg

DRUGS (2)
  1. PREDNISOLONE ACETATE. [Concomitant]
     Active Substance: PREDNISOLONE ACETATE
     Indication: CORNEAL TRANSPLANT
  2. NAGLAZYME [Suspect]
     Active Substance: GALSULFASE
     Indication: MUCOPOLYSACCHARIDOSIS VI
     Dosage: 20 MG, UNK
     Route: 042
     Dates: start: 20110928

REACTIONS (3)
  - Vision blurred [Unknown]
  - Blindness [Unknown]
  - Transplant rejection [Unknown]

NARRATIVE: CASE EVENT DATE: 20160807
